FAERS Safety Report 10562514 (Version 1)
Quarter: 2014Q4

REPORT INFORMATION
  Report Type: Spontaneous
  Country: US (occurrence: None)
  Receive Date: 20141103
  Receipt Date: 20141103
  Transmission Date: 20150529
  Serious: Yes (Hospitalization)
  Sender: FDA-Public Use
  Company Number: None

PATIENT
  Age: 56 Year
  Sex: Male
  Weight: 97.7 kg

DRUGS (2)
  1. LOSARTAN [Suspect]
     Active Substance: LOSARTAN
     Indication: HYPERTENSION
     Dosage: MG PO
     Route: 048
     Dates: start: 20130226, end: 20130324
  2. LOSARTAN [Suspect]
     Active Substance: LOSARTAN
     Indication: DIABETES MELLITUS
     Dosage: MG PO
     Route: 048
     Dates: start: 20130226, end: 20130324

REACTIONS (1)
  - Angioedema [None]

NARRATIVE: CASE EVENT DATE: 20130324
